FAERS Safety Report 5381448-8 (Version None)
Quarter: 2007Q2

REPORT INFORMATION
  Report Type: 
  Country: None (occurrence: None)
  Receive Date: 20070629
  Receipt Date: 20070425
  Transmission Date: 20071010
  Serious: Yes (Other)
  Sender: FDA-Public Use
  Company Number: US200704005924

PATIENT
  Sex: Male

DRUGS (3)
  1. HUMALOG PEN [Suspect]
     Indication: DIABETES MELLITUS
     Dosage: 20 U, OTHER;
  2. HUMULIN 70/30 [Suspect]
     Indication: DIABETES MELLITUS
     Dosage: 100 U, OTHER : 30U, EACH EVENING,
     Dates: start: 20060901
  3. HUMULIN R [Suspect]
     Indication: DIABETES MELLITUS
     Dates: end: 20060901

REACTIONS (5)
  - BLOOD GLUCOSE INCREASED [None]
  - BRAIN DAMAGE [None]
  - DEMENTIA ALZHEIMER'S TYPE [None]
  - RENAL DISORDER [None]
  - TRANSIENT ISCHAEMIC ATTACK [None]
